FAERS Safety Report 9543221 (Version 1)
Quarter: 2013Q3

REPORT INFORMATION
  Report Type: Spontaneous
  Country: US (occurrence: US)
  Receive Date: 20130923
  Receipt Date: 20130923
  Transmission Date: 20140515
  Serious: No
  Sender: FDA-Public Use
  Company Number: US-PURDUE-USA-2012-0080921

PATIENT
  Sex: Female

DRUGS (4)
  1. DILAUDID TABLET [Suspect]
     Indication: PAIN
     Dosage: 10 MG, UNK
     Route: 048
  2. REVLIMID [Suspect]
     Indication: PLASMA CELL MYELOMA
     Dosage: 10MG DAILY X 14 DAYS
     Route: 048
     Dates: start: 20110325
  3. FENTANYL [Suspect]
     Indication: PAIN
     Dosage: UNK
     Route: 062
  4. OXYCODONE HCL CR TABLETS (SIMILAR TO NDA 20-553) [Suspect]
     Indication: PAIN
     Dosage: UNK

REACTIONS (1)
  - Constipation [Unknown]
